FAERS Safety Report 8207529-9 (Version None)
Quarter: 2012Q1

REPORT INFORMATION
  Report Type: 
  Country: None (occurrence: None)
  Receive Date: 20120314
  Receipt Date: 20120229
  Transmission Date: 20120608
  Serious: Yes (Other)
  Sender: FDA-Public Use
  Company Number: US-BRISTOL-MYERS SQUIBB COMPANY-16431165

PATIENT
  Age: 39 Year
  Sex: Male

DRUGS (8)
  1. TOPAMAX [Concomitant]
  2. ZYPREXA [Concomitant]
  3. PAXIL [Suspect]
     Indication: ANXIETY DISORDER
     Dosage: TABLET TAKEN OVER 8YRS
     Route: 048
     Dates: start: 19950101
  4. WELLBUTRIN [Suspect]
     Indication: DEPRESSION
     Dosage: INTER BW 1996-2000.TABLET
     Route: 048
     Dates: start: 19960101
  5. REQUIP [Interacting]
     Indication: RESTLESS LEGS SYNDROME
     Dosage: TABLETS
     Route: 048
     Dates: start: 20080901, end: 20081001
  6. LAMICTAL [Suspect]
     Indication: TEMPORAL LOBE EPILEPSY
     Dosage: TAB
     Route: 048
     Dates: start: 19980101
  7. BUSPAR [Interacting]
     Dosage: TAB
     Route: 065
  8. PAXIL [Suspect]
     Indication: DEPRESSION
     Dosage: TABLET TAKEN OVER 8YRS
     Route: 048
     Dates: start: 19950101

REACTIONS (9)
  - DRUG INTERACTION [None]
  - NERVOUSNESS [None]
  - DRUG INTOLERANCE [None]
  - ADVERSE DRUG REACTION [None]
  - WEIGHT INCREASED [None]
  - DRUG DEPENDENCE [None]
  - INSOMNIA [None]
  - SEXUAL DYSFUNCTION [None]
  - FEAR [None]
